FAERS Safety Report 25345531 (Version 2)
Quarter: 2025Q2

REPORT INFORMATION
  Report Type: Spontaneous
  Country: US (occurrence: US)
  Receive Date: 20250522
  Receipt Date: 20250606
  Transmission Date: 20250716
  Serious: Yes (Other)
  Sender: ELI LILLY AND COMPANY
  Company Number: US-ELI_LILLY_AND_COMPANY-US202505010720

PATIENT
  Age: 65 Year
  Sex: Male

DRUGS (1)
  1. INSULIN LISPRO [Suspect]
     Active Substance: INSULIN LISPRO
     Indication: Product used for unknown indication
     Dosage: 28 MG, TID
     Route: 065

REACTIONS (3)
  - Neoplasm malignant [Unknown]
  - Product dose omission issue [Recovered/Resolved]
  - Blood glucose increased [Recovered/Resolved]
